FAERS Safety Report 20834162 (Version 1)
Quarter: 2022Q2

REPORT INFORMATION
  Report Type: Spontaneous
  Country: ES (occurrence: None)
  Receive Date: 20220514
  Receipt Date: 20220514
  Transmission Date: 20220721
  Serious: Yes (Disabling)
  Sender: FDA-Public Use
  Company Number: None

PATIENT
  Age: 53 Year
  Sex: Male
  Weight: 70 kg

DRUGS (1)
  1. NICORETTE ORIGINAL [Suspect]
     Active Substance: NICOTINE

REACTIONS (4)
  - Reaction to excipient [None]
  - Headache [None]
  - Unevaluable event [None]
  - Product complaint [None]

NARRATIVE: CASE EVENT DATE: 19900606
